FAERS Safety Report 24568743 (Version 1)
Quarter: 2024Q4

REPORT INFORMATION
  Report Type: Spontaneous
  Country: US (occurrence: US)
  Receive Date: 20241031
  Receipt Date: 20241031
  Transmission Date: 20250115
  Serious: Yes (Other)
  Sender: BRISTOL-MYERS SQUIBB COMPANY
  Company Number: US-BRISTOL-MYERS SQUIBB COMPANY-2024-168876

PATIENT
  Age: 58 Year
  Sex: Female

DRUGS (1)
  1. ONUREG [Suspect]
     Active Substance: AZACITIDINE
     Indication: Product used for unknown indication
     Dosage: DOSE : 200MG;     FREQ : TAKE 1 TABLET BY MOUTH ONCE DAILY FOR 14 DAYS OF A 28 DAY CYCLE
     Route: 048

REACTIONS (1)
  - Diabetes mellitus [Unknown]

NARRATIVE: CASE EVENT DATE: 20240101
